FAERS Safety Report 15669032 (Version 1)
Quarter: 2018Q4

REPORT INFORMATION
  Report Type: Report from Study
  Country: None (occurrence: BR)
  Receive Date: 20181129
  Receipt Date: 20181129
  Transmission Date: 20190205
  Serious: Yes (Other)
  Sender: FDA-Public Use
  Company Number: BR-ABBVIE-16K-020-1658016-00

PATIENT
  Sex: Male
  Weight: 118 kg

DRUGS (6)
  1. HIGROTON [Concomitant]
     Active Substance: CHLORTHALIDONE
     Indication: PRODUCT USED FOR UNKNOWN INDICATION
     Route: 048
     Dates: start: 2011
  2. CHLORTHALIDONE. [Concomitant]
     Active Substance: CHLORTHALIDONE
     Indication: BLOOD PRESSURE ABNORMAL
     Route: 048
  3. HUMIRA [Suspect]
     Active Substance: ADALIMUMAB
     Indication: ANKYLOSING SPONDYLITIS
     Route: 058
     Dates: start: 20160418
  4. TORSILAX [Concomitant]
     Active Substance: ACETAMINOPHEN\CAFFEINE\CARISOPRODOL\DICLOFENAC
     Indication: PAIN
     Route: 048
  5. LOTAR [Concomitant]
     Active Substance: AMLODIPINE\LOSARTAN
     Indication: HYPERTENSION
     Dosage: FORM STRENGTH: AMLODIPINE BESYLATE 5 MG / LOSARTAN 100 MG(LOTAR)
     Route: 048
  6. REVANGE [Concomitant]
     Indication: PAIN
     Dosage: FORM STRENGTH: TRAMADOL HYDROCHLORIDE 37.5 MG / PARACETAMOL 325 MG(REVANGE)
     Route: 048
     Dates: start: 201510, end: 201601

REACTIONS (2)
  - Back pain [Recovering/Resolving]
  - Weight increased [Recovering/Resolving]

NARRATIVE: CASE EVENT DATE: 2016
